FAERS Safety Report 13891281 (Version 2)
Quarter: 2018Q3

REPORT INFORMATION
  Report Type: Report from Study
  Country: US (occurrence: US)
  Receive Date: 20170822
  Receipt Date: 20180719
  Transmission Date: 20181010
  Serious: No
  Sender: FDA-Public Use
  Company Number: PHEH2017US026727

PATIENT
  Sex: Male

DRUGS (2)
  1. ILARIS [Suspect]
     Active Substance: CANAKINUMAB
     Dosage: 250 MG, QMO (EVERY 30 DAYS)
     Route: 058
     Dates: start: 20180706
  2. ILARIS [Suspect]
     Active Substance: CANAKINUMAB
     Indication: STILL^S DISEASE
     Dosage: 250 MG, QMO (EVERY 30 DAYS)
     Route: 058

REACTIONS (1)
  - Inappropriate schedule of drug administration [Unknown]
